FAERS Safety Report 5201163-0 (Version None)
Quarter: 2007Q1

REPORT INFORMATION
  Report Type: 
  Country: None (occurrence: None)
  Receive Date: 20070108
  Receipt Date: 20070104
  Transmission Date: 20070707
  Serious: Yes (Disabling)
  Sender: FDA-Public Use
  Company Number: 2007AP00198

PATIENT
  Age: 74 Year
  Sex: Female
  Weight: 97 kg

DRUGS (3)
  1. NEXIUM [Suspect]
     Route: 048
  2. CLARITHROMYCIN [Suspect]
     Route: 048
  3. AMOXICILLIN [Suspect]
     Route: 048

REACTIONS (5)
  - BLOOD PRESSURE INCREASED [None]
  - DEPRESSION [None]
  - LISTLESS [None]
  - NIGHTMARE [None]
  - RESTLESSNESS [None]
